FAERS Safety Report 7025310-3 (Version None)
Quarter: 2010Q4

REPORT INFORMATION
  Report Type: 
  Country: None (occurrence: None)
  Receive Date: 20101001
  Receipt Date: 20100927
  Transmission Date: 20110411
  Serious: Yes (Death)
  Sender: FDA-Public Use
  Company Number: US-GILEAD-2010-0032163

PATIENT
  Sex: Female
  Weight: 63.56 kg

DRUGS (14)
  1. LETAIRIS [Suspect]
     Indication: PULMONARY ARTERIAL HYPERTENSION
     Route: 048
     Dates: start: 20070920, end: 20100908
  2. REVATIO [Concomitant]
  3. VENTAVIS [Concomitant]
  4. COUMADIN [Concomitant]
  5. OXYGEN [Concomitant]
  6. FUROSEMIDE [Concomitant]
  7. AUGMENTIN '125' [Concomitant]
  8. DICLOXACILLIN [Concomitant]
  9. POTASSIUM CHLORIDE [Concomitant]
  10. ALLEGRA [Concomitant]
  11. FLONASE [Concomitant]
  12. NEXIUM [Concomitant]
  13. IRON [Concomitant]
  14. ASCORBIC ACID [Concomitant]

REACTIONS (1)
  - DEATH [None]
